FAERS Safety Report 13403087 (Version 1)
Quarter: 2017Q2

REPORT INFORMATION
  Report Type: Spontaneous
  Country: US (occurrence: US)
  Receive Date: 20170404
  Receipt Date: 20170404
  Transmission Date: 20170830
  Serious: Yes (Hospitalization)
  Sender: FDA-Public Use
  Company Number: US-ROCHE-1853408

PATIENT
  Age: 64 Year
  Sex: Female

DRUGS (3)
  1. AVASTIN [Suspect]
     Active Substance: BEVACIZUMAB
     Indication: DIABETIC RETINOPATHY
     Route: 050
     Dates: start: 20161101
  2. AVASTIN [Suspect]
     Active Substance: BEVACIZUMAB
     Indication: MACULAR OEDEMA
  3. AVASTIN [Suspect]
     Active Substance: BEVACIZUMAB
     Indication: TYPE 2 DIABETES MELLITUS
     Dosage: STRENGTH : 25 MG/ML
     Route: 050
     Dates: start: 20160907

REACTIONS (3)
  - Chest discomfort [Unknown]
  - Hypertension [Unknown]
  - Anxiety [Unknown]

NARRATIVE: CASE EVENT DATE: 20161019
